FAERS Safety Report 14218129 (Version 3)
Quarter: 2018Q1

REPORT INFORMATION
  Report Type: Report from Study
  Country: None (occurrence: US)
  Receive Date: 20171123
  Receipt Date: 20180329
  Transmission Date: 20180508
  Serious: Yes (Hospitalization, Other)
  Sender: FDA-Public Use
  Company Number: US-ABBVIE-17K-163-2090053-00

PATIENT
  Age: 71 Year
  Sex: Female
  Weight: 97.16 kg

DRUGS (11)
  1. VITAMIN D [Concomitant]
     Active Substance: CHOLECALCIFEROL
     Indication: VITAMIN SUPPLEMENTATION
  2. SYNTHROID [Concomitant]
     Active Substance: LEVOTHYROXINE SODIUM
     Indication: HYPOTHYROIDISM
  3. LYRICA [Concomitant]
     Active Substance: PREGABALIN
     Indication: PRODUCT USED FOR UNKNOWN INDICATION
  4. TRADJENTA [Concomitant]
     Active Substance: LINAGLIPTIN
     Indication: TYPE 2 DIABETES MELLITUS
  5. HUMIRA [Suspect]
     Active Substance: ADALIMUMAB
     Route: 058
     Dates: end: 20180211
  6. PECTINOL [Concomitant]
     Indication: PRODUCT USED FOR UNKNOWN INDICATION
  7. HECTOROL [Concomitant]
     Active Substance: DOXERCALCIFEROL
     Indication: VITAMIN SUPPLEMENTATION
  8. ALOPURINOL [Concomitant]
     Active Substance: ALLOPURINOL
     Indication: PRODUCT USED FOR UNKNOWN INDICATION
  9. HUMIRA [Suspect]
     Active Substance: ADALIMUMAB
     Indication: RHEUMATOID ARTHRITIS
     Route: 058
     Dates: start: 2015
  10. PROTONIX [Concomitant]
     Active Substance: PANTOPRAZOLE SODIUM
     Indication: GASTROOESOPHAGEAL REFLUX DISEASE
  11. VICODIN [Concomitant]
     Active Substance: ACETAMINOPHEN\HYDROCODONE BITARTRATE
     Indication: ARTHRALGIA

REACTIONS (16)
  - Nephropathy [Not Recovered/Not Resolved]
  - Confusional state [Recovering/Resolving]
  - Dyspnoea [Not Recovered/Not Resolved]
  - Seizure [Recovered/Resolved]
  - Urinary tract infection [Recovering/Resolving]
  - White blood cell count decreased [Recovering/Resolving]
  - Dizziness [Recovering/Resolving]
  - Pneumonia [Recovered/Resolved]
  - Sepsis [Recovered/Resolved]
  - Encephalopathy [Not Recovered/Not Resolved]
  - Squamous cell carcinoma [Not Recovered/Not Resolved]
  - Renal impairment [Recovering/Resolving]
  - Drug effect decreased [Unknown]
  - Loss of consciousness [Recovered/Resolved]
  - Fall [Recovered/Resolved]
  - Rheumatoid arthritis [Recovering/Resolving]

NARRATIVE: CASE EVENT DATE: 2015
